FAERS Safety Report 7119453-3 (Version None)
Quarter: 2010Q4

REPORT INFORMATION
  Report Type: 
  Country: None (occurrence: None)
  Receive Date: 20101123
  Receipt Date: 20101111
  Transmission Date: 20110411
  Serious: Yes (Hospitalization, Other)
  Sender: FDA-Public Use
  Company Number: JP-ACTELION-A-CH2010-41688

PATIENT
  Age: 60 Year
  Sex: Female

DRUGS (2)
  1. TRACLEER [Suspect]
     Indication: SKIN ULCER
     Dosage: 250 MG, QD
     Route: 048
  2. TRACLEER [Suspect]
     Dosage: 125 MG, QD
     Route: 048

REACTIONS (2)
  - FINGER AMPUTATION [None]
  - NO THERAPEUTIC RESPONSE [None]
